FAERS Safety Report 25707355 (Version 1)
Quarter: 2025Q3

REPORT INFORMATION
  Report Type: Report from Study
  Country: US (occurrence: US)
  Receive Date: 20250820
  Receipt Date: 20250820
  Transmission Date: 20251020
  Serious: Yes (Life-Threatening)
  Sender: NOVARTIS
  Company Number: US-002147023-NVSC2025US130661

PATIENT
  Sex: Male

DRUGS (1)
  1. PLUVICTO [Suspect]
     Active Substance: LUTETIUM LU-177 VIPIVOTIDE TETRAXETAN
     Indication: Product used for unknown indication
     Route: 065

REACTIONS (9)
  - Fear of death [Unknown]
  - Dyspepsia [Unknown]
  - Nausea [Unknown]
  - General physical health deterioration [Unknown]
  - Discomfort [Unknown]
  - Lethargy [Unknown]
  - Fatigue [Unknown]
  - Decreased appetite [Unknown]
  - Memory impairment [Unknown]
